FAERS Safety Report 20785654 (Version 1)
Quarter: 2022Q2

REPORT INFORMATION
  Report Type: Spontaneous
  Country: US (occurrence: None)
  Receive Date: 20220504
  Receipt Date: 20220504
  Transmission Date: 20220721
  Serious: No
  Sender: FDA-Public Use
  Company Number: US-ROCHE-2806533

PATIENT
  Sex: Female

DRUGS (1)
  1. OCREVUS [Suspect]
     Active Substance: OCRELIZUMAB
     Indication: Progressive multiple sclerosis
     Route: 065
     Dates: start: 201903

REACTIONS (4)
  - Speech disorder [Unknown]
  - Fatigue [Unknown]
  - Muscle spasticity [Not Recovered/Not Resolved]
  - Hypoaesthesia [Unknown]
